FAERS Safety Report 4680125-6 (Version None)
Quarter: 2005Q2

REPORT INFORMATION
  Report Type: 
  Country: None (occurrence: None)
  Receive Date: 20050531
  Receipt Date: 20050512
  Transmission Date: 20051028
  Serious: Yes (Hospitalization, Other)
  Sender: FDA-Public Use
  Company Number: 186099

PATIENT
  Age: 46 Year
  Sex: Female

DRUGS (2)
  1. AVONEX [Suspect]
     Indication: MULTIPLE SCLEROSIS
     Dosage: 30 UG; QW; IM
     Route: 030
     Dates: start: 20010124
  2. NAPROXEN [Concomitant]

REACTIONS (9)
  - CONSTIPATION [None]
  - DIZZINESS [None]
  - HEADACHE POSTOPERATIVE [None]
  - NON-HODGKIN'S LYMPHOMA [None]
  - POST PROCEDURAL COMPLICATION [None]
  - RED BLOOD CELL SEDIMENTATION RATE INCREASED [None]
  - SPLENIC HAEMORRHAGE [None]
  - UTERINE LEIOMYOMA [None]
  - WOUND INFECTION [None]
